FAERS Safety Report 11272006 (Version 1)
Quarter: 2015Q3

REPORT INFORMATION
  Report Type: Spontaneous
  Country: BR (occurrence: None)
  Receive Date: 20150713
  Receipt Date: 20150713
  Transmission Date: 20151125
  Serious: Yes (Hospitalization)
  Sender: FDA-Public Use
  Company Number: 2015FE02309

PATIENT
  Age: 13 Year
  Sex: Female

DRUGS (4)
  1. DDAVP [Suspect]
     Active Substance: DESMOPRESSIN ACETATE
     Indication: DIABETES INSIPIDUS
     Route: 045
  2. XELODA [Concomitant]
     Active Substance: CAPECITABINE
  3. DDAVP [Suspect]
     Active Substance: DESMOPRESSIN ACETATE
     Indication: DIABETES INSIPIDUS
     Route: 048
     Dates: start: 2014, end: 2014
  4. DEPAKENE [Concomitant]
     Active Substance: VALPROIC ACID

REACTIONS (5)
  - Hyponatraemia [None]
  - Off label use [None]
  - Seizure [None]
  - Drug ineffective [None]
  - Underdose [None]

NARRATIVE: CASE EVENT DATE: 2014
